FAERS Safety Report 4548345-9 (Version None)
Quarter: 2005Q1

REPORT INFORMATION
  Report Type: 
  Country: None (occurrence: None)
  Receive Date: 20050106
  Receipt Date: 20041221
  Transmission Date: 20050727
  Serious: Yes (Hospitalization)
  Sender: FDA-Public Use
  Company Number: US_0412109640

PATIENT
  Sex: Female

DRUGS (1)
  1. KEFLEX [Suspect]
     Dates: start: 20040801, end: 20040829

REACTIONS (5)
  - APNOEA [None]
  - LOCAL SWELLING [None]
  - OROPHARYNGEAL SWELLING [None]
  - SKIN INFLAMMATION [None]
  - SWELLING FACE [None]
